FAERS Safety Report 10365883 (Version 1)
Quarter: 2014Q3

REPORT INFORMATION
  Report Type: Spontaneous
  Country: IT (occurrence: IT)
  Receive Date: 20140806
  Receipt Date: 20140806
  Transmission Date: 20150326
  Serious: Yes (Hospitalization)
  Sender: FDA-Public Use
  Company Number: IT-TEVA-498976ISR

PATIENT
  Age: 74 Year
  Sex: Female

DRUGS (5)
  1. LAMOTRIGINA [Concomitant]
     Active Substance: LAMOTRIGINE
     Dosage: 100 MILLIGRAM DAILY;
     Route: 048
  2. CLOZAPINA [Concomitant]
     Active Substance: CLOZAPINE
     Indication: DEPRESSION
     Dosage: 350 MILLIGRAM DAILY;
     Route: 048
  3. CARBOLITHIUM 300 MG [Suspect]
     Active Substance: LITHIUM CARBONATE
     Indication: BIPOLAR DISORDER
     Dosage: 900 MILLIGRAM DAILY;
     Route: 048
     Dates: end: 20140430
  4. ALPRAZOLAM. [Concomitant]
     Active Substance: ALPRAZOLAM
     Indication: DEPRESSION
     Dosage: 20 GTT DAILY;
     Route: 048
  5. CEFTRIAXONE. [Concomitant]
     Active Substance: CEFTRIAXONE
     Indication: PNEUMONITIS
     Dosage: 100 MILLIGRAM DAILY;
     Route: 042
     Dates: start: 20140429, end: 20140430

REACTIONS (2)
  - Hypernatraemia [Recovered/Resolved]
  - Diabetes insipidus [Recovered/Resolved]

NARRATIVE: CASE EVENT DATE: 20140430
